FAERS Safety Report 19381656 (Version 7)
Quarter: 2022Q1

REPORT INFORMATION
  Report Type: Report from Study
  Country: BE (occurrence: BE)
  Receive Date: 20210607
  Receipt Date: 20220224
  Transmission Date: 20220423
  Serious: Yes (Other)
  Sender: FDA-Public Use
  Company Number: BE-ABBVIE-21K-013-3933932-00

PATIENT
  Sex: Male
  Weight: 75 kg

DRUGS (8)
  1. CARBIDOPA\LEVODOPA [Suspect]
     Active Substance: CARBIDOPA\LEVODOPA
     Indication: Parkinson^s disease
     Route: 050
     Dates: start: 20180313
  2. CARBIDOPA\LEVODOPA [Suspect]
     Active Substance: CARBIDOPA\LEVODOPA
     Dosage: MD 5.5 ML; CD 3.1ML/H; ED 1.7 ML
     Route: 050
     Dates: start: 20201208
  3. CARBIDOPA\LEVODOPA [Suspect]
     Active Substance: CARBIDOPA\LEVODOPA
     Dosage: MD 5.5 ML; CD 3.1ML/H; ED 1.7 ML; DURING 16HRS
     Route: 050
     Dates: start: 20210602, end: 20210809
  4. CARBIDOPA\LEVODOPA [Suspect]
     Active Substance: CARBIDOPA\LEVODOPA
     Dosage: ED 2.0 ML; DURING 16HRS
     Route: 050
     Dates: start: 20210809, end: 20210830
  5. CARBIDOPA\LEVODOPA [Suspect]
     Active Substance: CARBIDOPA\LEVODOPA
     Dosage: MD 5.5 ML; CD 3.1ML/H; ED 2.2 ML; DURING 16HRS
     Route: 050
     Dates: start: 20210830, end: 20210914
  6. CARBIDOPA\LEVODOPA [Suspect]
     Active Substance: CARBIDOPA\LEVODOPA
     Dosage: MD 5.5 ML; CD 3.1ML/H; ED 2.2 ML; DURING 16HRS
     Route: 050
     Dates: start: 20210914, end: 20220112
  7. CARBIDOPA\LEVODOPA [Suspect]
     Active Substance: CARBIDOPA\LEVODOPA
     Dosage: MD 5.5 ML; CD 2.9 ML/H; ED 1.8 ML; DURING 16 HRS
     Route: 050
     Dates: start: 20220112, end: 20220222
  8. CARBIDOPA\LEVODOPA [Suspect]
     Active Substance: CARBIDOPA\LEVODOPA
     Dosage: MD 5.5 ML; CD 2.9 ML/H; ED 2.0 ML; DURING 16 HRS
     Route: 050
     Dates: start: 20220222

REACTIONS (5)
  - Intestinal haemorrhage [Recovered/Resolved]
  - Dyskinesia [Not Recovered/Not Resolved]
  - Gastrostomy [Unknown]
  - Therapeutic product effect incomplete [Not Recovered/Not Resolved]
  - Weight decreased [Recovered/Resolved]
